FAERS Safety Report 24378324 (Version 1)
Quarter: 2024Q3

REPORT INFORMATION
  Report Type: Spontaneous
  Country: FR (occurrence: FR)
  Receive Date: 20240930
  Receipt Date: 20240930
  Transmission Date: 20241017
  Serious: Yes (Hospitalization)
  Sender: MYLAN
  Company Number: None

PATIENT
  Age: 82 Year
  Sex: Female
  Weight: 74.7 kg

DRUGS (2)
  1. ATORVASTATIN [Suspect]
     Active Substance: ATORVASTATIN
     Indication: Dyslipidaemia
     Dosage: UNK (NOT SPECIFIED)
     Route: 048
     Dates: end: 20240723
  2. NITROFURANTOIN [Suspect]
     Active Substance: NITROFURANTOIN
     Indication: Cystitis
     Dosage: UNK (NOT SPECIFIED)
     Route: 048
     Dates: start: 20240401, end: 20240723

REACTIONS (3)
  - Pruritus [Recovering/Resolving]
  - Hepatitis cholestatic [Recovering/Resolving]
  - Jaundice [Recovering/Resolving]

NARRATIVE: CASE EVENT DATE: 20240716
